FAERS Safety Report 9400591 (Version 3)
Quarter: 2013Q3

REPORT INFORMATION
  Report Type: Spontaneous
  Country: US (occurrence: US)
  Receive Date: 20130715
  Receipt Date: 20130909
  Transmission Date: 20140515
  Serious: Yes (Death, Hospitalization, Other)
  Sender: FDA-Public Use
  Company Number: US-GILEAD-2013-0077513

PATIENT
  Age: 56 Year
  Sex: Female

DRUGS (2)
  1. LETAIRIS [Suspect]
     Indication: PULMONARY ARTERIAL HYPERTENSION
     Dosage: 5 MG, UNK
     Dates: start: 20120207
  2. LETAIRIS [Suspect]
     Dosage: 10 MG, QD
     Dates: start: 20121003

REACTIONS (2)
  - Hypoxia [Fatal]
  - Idiopathic pulmonary fibrosis [Fatal]
